FAERS Safety Report 17848321 (Version 6)
Quarter: 2021Q4

REPORT INFORMATION
  Report Type: Other
  Country: IT (occurrence: None)
  Receive Date: 20200602
  Receipt Date: 20211111
  Transmission Date: 20220303
  Serious: Yes (Death, Hospitalization, Other)
  Sender: FDA-Public Use
  Company Number: IT-ROCHE-2606610

PATIENT
  Age: 50 Year
  Sex: Female
  Weight: 55 kg

DRUGS (17)
  1. OCRELIZUMAB [Suspect]
     Active Substance: OCRELIZUMAB
     Indication: Secondary progressive multiple sclerosis
     Dosage: 4 CYCLES, DATE OF LAST DOSE TAKEN ON 12-FEB-2020
     Route: 042
     Dates: start: 20200201
  2. GLATIRAMER ACETATE [Concomitant]
     Active Substance: GLATIRAMER ACETATE
  3. HYDROXYCHLOROQUINE [Concomitant]
     Active Substance: HYDROXYCHLOROQUINE
  4. DARUNAVIR [Concomitant]
     Active Substance: DARUNAVIR
  5. RITONAVIR [Concomitant]
     Active Substance: RITONAVIR
  6. CEFTRIAXONE [Concomitant]
     Active Substance: CEFTRIAXONE
  7. PIPERACILLIN AND TAZOBACTAM [Concomitant]
     Active Substance: PIPERACILLIN SODIUM\TAZOBACTAM SODIUM
  8. MEROPENEM [Concomitant]
     Active Substance: MEROPENEM
  9. LINEZOLID [Concomitant]
     Active Substance: LINEZOLID
  10. CASPOFUNGIN [Concomitant]
     Active Substance: CASPOFUNGIN
  11. SULFAMETHOXAZOLE\TRIMETHOPRIM [Concomitant]
     Active Substance: SULFAMETHOXAZOLE\TRIMETHOPRIM
  12. NITROUS OXIDE [Concomitant]
     Active Substance: NITROUS OXIDE
  13. DEXAMETHASONE [Concomitant]
     Active Substance: DEXAMETHASONE
  14. OXYGEN [Concomitant]
     Active Substance: OXYGEN
  15. OZONE [Concomitant]
     Active Substance: OZONE
  16. INTERFERON BETA [Concomitant]
     Active Substance: INTERFERON BETA
  17. TERIFLUNOMIDE [Concomitant]
     Active Substance: TERIFLUNOMIDE

REACTIONS (7)
  - COVID-19 pneumonia [Fatal]
  - Cardio-respiratory arrest [Fatal]
  - Acute pulmonary oedema [Fatal]
  - Pulmonary embolism [Recovered/Resolved]
  - Syncope [Unknown]
  - Dyspnoea [Unknown]
  - Pyrexia [Unknown]

NARRATIVE: CASE EVENT DATE: 20200317
